FAERS Safety Report 5369354-6 (Version None)
Quarter: 2007Q2

REPORT INFORMATION
  Report Type: 
  Country: None (occurrence: None)
  Receive Date: 20070625
  Receipt Date: 20070326
  Transmission Date: 20071010
  Serious: No
  Sender: FDA-Public Use
  Company Number: US-ASTRAZENECA-2007UW06112

PATIENT
  Age: 77 Year
  Sex: Female
  Weight: 59.9 kg

DRUGS (4)
  1. CRESTOR [Suspect]
     Route: 048
     Dates: start: 20070325
  2. LOTREL [Concomitant]
  3. LORAZEPAM [Concomitant]
     Indication: SLEEP DISORDER
  4. ADVIL [Concomitant]
     Indication: ARTHRITIS

REACTIONS (1)
  - POLLAKIURIA [None]
